FAERS Safety Report 5087972-X (Version None)
Quarter: 2006Q3

REPORT INFORMATION
  Report Type: 
  Country: None (occurrence: None)
  Receive Date: 20060821
  Receipt Date: 20060810
  Transmission Date: 20061208
  Serious: Yes (Disabling)
  Sender: FDA-Public Use
  Company Number: 0603106US

PATIENT
  Age: 44 Year
  Sex: Female

DRUGS (1)
  1. BOTOX [Suspect]
     Indication: SKIN WRINKLING
     Dosage: 51 UNITS, SINGLE, INTRAMUSCULAR
     Route: 030
     Dates: start: 20060718, end: 20060718

REACTIONS (4)
  - ARTHRALGIA [None]
  - ASTHENIA [None]
  - BLOOD CREATINE PHOSPHOKINASE INCREASED [None]
  - IMPAIRED WORK ABILITY [None]
